FAERS Safety Report 9297182 (Version 1)
Quarter: 2013Q2

REPORT INFORMATION
  Report Type: Report from Study
  Country: DE (occurrence: DE)
  Receive Date: 20130520
  Receipt Date: 20130520
  Transmission Date: 20140414
  Serious: Yes (Death, Other)
  Sender: FDA-Public Use
  Company Number: DE-ROCHE-1225904

PATIENT
  Sex: Male

DRUGS (2)
  1. VEMURAFENIB [Suspect]
     Indication: NEOPLASM MALIGNANT
     Route: 065
     Dates: start: 201204
  2. VEMURAFENIB [Suspect]
     Route: 065
     Dates: start: 201205

REACTIONS (2)
  - Metastases to central nervous system [Fatal]
  - Pancreatitis [Unknown]
